FAERS Safety Report 22361887 (Version 1)
Quarter: 2023Q2

REPORT INFORMATION
  Report Type: Spontaneous
  Country: US (occurrence: US)
  Receive Date: 20230524
  Receipt Date: 20230524
  Transmission Date: 20230722
  Serious: Yes (Life-Threatening, Hospitalization, Other)
  Sender: FDA-Public Use
  Company Number: US-MYLANLABS-2023M1052378

PATIENT
  Age: 47 Year
  Sex: Female

DRUGS (1)
  1. EPINEPHRINE [Suspect]
     Active Substance: EPINEPHRINE
     Indication: Anaphylactic reaction
     Dosage: UNK, ERRONEOUS ADMINISTRATION OF IV EPINEPHRINE 0.3 MG (1:1000) FORMULATED....
     Route: 030

REACTIONS (13)
  - Incorrect route of product administration [Recovered/Resolved]
  - Overdose [Recovered/Resolved]
  - Cardiogenic shock [Recovered/Resolved]
  - Stress cardiomyopathy [Recovered/Resolved]
  - Cardiac arrest [Recovered/Resolved]
  - Myocardial stunning [Recovered/Resolved]
  - Toxicity to various agents [Recovered/Resolved]
  - Cardiac failure acute [Recovered/Resolved]
  - Ventricular arrhythmia [Recovered/Resolved]
  - Post-traumatic stress disorder [Unknown]
  - Depression [Unknown]
  - Anxiety [Unknown]
  - Brain injury [Unknown]
